FAERS Safety Report 11691455 (Version 1)
Quarter: 2015Q4

REPORT INFORMATION
  Report Type: Report from Study
  Country: AR (occurrence: AR)
  Receive Date: 20151102
  Receipt Date: 20151102
  Transmission Date: 20160304
  Serious: Yes (Death)
  Sender: FDA-Public Use
  Company Number: AR-ABBVIE-15P-007-1490799-00

PATIENT
  Age: 73 Year
  Sex: Male

DRUGS (1)
  1. ZEMPLAR [Suspect]
     Active Substance: PARICALCITOL
     Indication: HYPERPARATHYROIDISM SECONDARY
     Route: 048
     Dates: start: 20131112, end: 20151013

REACTIONS (1)
  - Renal failure [Fatal]

NARRATIVE: CASE EVENT DATE: 20151013
